FAERS Safety Report 14355915 (Version 1)
Quarter: 2018Q1

REPORT INFORMATION
  Report Type: Spontaneous
  Country: FR (occurrence: FR)
  Receive Date: 20180105
  Receipt Date: 20180105
  Transmission Date: 20180509
  Serious: Yes (Other)
  Sender: FDA-Public Use
  Company Number: FR-MERCK KGAA-2039479

PATIENT
  Age: 70 Year
  Weight: 62 kg

DRUGS (1)
  1. NOVOTHYROX [Suspect]
     Active Substance: LEVOTHYROXINE SODIUM
     Indication: HYPOTHYROIDISM
     Route: 048
     Dates: start: 201705, end: 20171002

REACTIONS (14)
  - Gastrointestinal motility disorder [Recovered/Resolved]
  - Prurigo [Recovered/Resolved]
  - Palpitations [Recovered/Resolved]
  - Weight increased [Recovered/Resolved]
  - Disturbance in attention [Recovered/Resolved]
  - Skin odour abnormal [Recovered/Resolved]
  - Asthenia [Recovered/Resolved]
  - Blood thyroid stimulating hormone normal [Recovered/Resolved]
  - Gastrooesophageal reflux disease [Recovered/Resolved]
  - Spontaneous haematoma [Recovered/Resolved]
  - Somnolence [Recovered/Resolved]
  - Rash [Recovered/Resolved]
  - Hypotension [Recovered/Resolved]
  - Insomnia [Recovered/Resolved]

NARRATIVE: CASE EVENT DATE: 201705
